FAERS Safety Report 18092027 (Version 1)
Quarter: 2020Q3

REPORT INFORMATION
  Report Type: Spontaneous
  Country: US (occurrence: US)
  Receive Date: 20200730
  Receipt Date: 20200730
  Transmission Date: 20201103
  Serious: Yes (Disabling)
  Sender: FDA-Public Use
  Company Number: None

PATIENT
  Age: 52 Year
  Sex: Female
  Weight: 87.75 kg

DRUGS (10)
  1. PREVACID [Concomitant]
     Active Substance: LANSOPRAZOLE
  2. MEDICAL MARIJUANA OIL [Concomitant]
  3. MAXALT [Concomitant]
     Active Substance: RIZATRIPTAN BENZOATE
  4. VITAMIN C [Concomitant]
     Active Substance: ASCORBIC ACID
  5. D?3 [Concomitant]
     Active Substance: CHOLECALCIFEROL
  6. FLEXERIL [Concomitant]
     Active Substance: CYCLOBENZAPRINE HYDROCHLORIDE
  7. DAILY WOMAN^S VITAMIN B?12 [Concomitant]
  8. BLUMEN CLEAR ADVANCED HAND SANITIZER [Suspect]
     Active Substance: ALCOHOL
     Indication: INFECTION PROPHYLAXIS
     Dosage: ?          QUANTITY:1 1;?
     Route: 061
     Dates: start: 20200701, end: 20200729
  9. HYDROCODONE [Concomitant]
     Active Substance: HYDROCODONE
  10. ZINC. [Concomitant]
     Active Substance: ZINC

REACTIONS (5)
  - Vomiting [None]
  - Fatigue [None]
  - Nausea [None]
  - Headache [None]
  - Dizziness [None]

NARRATIVE: CASE EVENT DATE: 20200701
